FAERS Safety Report 16436935 (Version 21)
Quarter: 2020Q3

REPORT INFORMATION
  Report Type: Report from Study
  Country: US (occurrence: US)
  Receive Date: 20190614
  Receipt Date: 20200814
  Transmission Date: 20201102
  Serious: Yes (Hospitalization, Other)
  Sender: FDA-Public Use
  Company Number: US-ACTELION-A-US2019-191562

PATIENT
  Sex: Male
  Weight: 74.83 kg

DRUGS (7)
  1. OPSUMIT [Suspect]
     Active Substance: MACITENTAN
     Indication: PULMONARY HYPERTENSION
     Dosage: 10 MG, QD
     Route: 048
  2. OXYGEN. [Concomitant]
     Active Substance: OXYGEN
  3. ADEMPAS [Suspect]
     Active Substance: RIOCIGUAT
     Indication: PRODUCT USED FOR UNKNOWN INDICATION
     Dosage: 1.0 MG, TID
     Route: 065
  4. ADEMPAS [Suspect]
     Active Substance: RIOCIGUAT
     Dosage: 0.5 MG
     Route: 065
  5. ADEMPAS [Suspect]
     Active Substance: RIOCIGUAT
     Dosage: 0.5 MG, TID
     Route: 065
  6. ADEMPAS [Suspect]
     Active Substance: RIOCIGUAT
     Dosage: 1.5 MG
     Route: 065
  7. HYDROCHLOROTHIAZIDE. [Concomitant]
     Active Substance: HYDROCHLOROTHIAZIDE

REACTIONS (47)
  - Pneumonia [Unknown]
  - Pain [Not Recovered/Not Resolved]
  - Paranasal sinus discomfort [Unknown]
  - Cough [Unknown]
  - Sinus congestion [Unknown]
  - Condition aggravated [Unknown]
  - Hypersomnia [Unknown]
  - Dyspnoea [Not Recovered/Not Resolved]
  - Dyspnoea exertional [Unknown]
  - Treatment noncompliance [Unknown]
  - Haemorrhoids [Recovering/Resolving]
  - Asthenia [Not Recovered/Not Resolved]
  - Back pain [Not Recovered/Not Resolved]
  - Hypotension [Unknown]
  - Dizziness [Unknown]
  - Productive cough [Not Recovered/Not Resolved]
  - Muscle spasms [Unknown]
  - Pyrexia [Unknown]
  - Septic shock [Unknown]
  - Dizziness exertional [Unknown]
  - Pain in extremity [Not Recovered/Not Resolved]
  - Decreased appetite [Not Recovered/Not Resolved]
  - Dyspnoea at rest [Unknown]
  - Abdominal pain upper [Unknown]
  - Head discomfort [Not Recovered/Not Resolved]
  - Abdominal pain [Unknown]
  - Hypoaesthesia [Unknown]
  - Epistaxis [Unknown]
  - Nasal dryness [Unknown]
  - Abdominal distension [Unknown]
  - Sputum discoloured [Unknown]
  - Diarrhoea [Unknown]
  - Gastric disorder [Not Recovered/Not Resolved]
  - Renal disorder [Recovered/Resolved]
  - Constipation [Unknown]
  - Chest discomfort [Not Recovered/Not Resolved]
  - Chest pain [Unknown]
  - Headache [Not Recovered/Not Resolved]
  - Arthralgia [Not Recovered/Not Resolved]
  - Dysuria [Recovered/Resolved]
  - Oxygen saturation decreased [Not Recovered/Not Resolved]
  - Joint swelling [Recovering/Resolving]
  - Oedema peripheral [Unknown]
  - Tinnitus [Not Recovered/Not Resolved]
  - Pulmonary fibrosis [Unknown]
  - Malaise [Unknown]
  - Scleroderma [Not Recovered/Not Resolved]

NARRATIVE: CASE EVENT DATE: 2017
